FAERS Safety Report 5429838-9 (Version None)
Quarter: 2007Q3

REPORT INFORMATION
  Report Type: 
  Country: None (occurrence: None)
  Receive Date: 20070827
  Receipt Date: 20070813
  Transmission Date: 20080115
  Serious: Yes (Other)
  Sender: FDA-Public Use
  Company Number: 233510K07USA

PATIENT
  Age: 23 Year
  Sex: Female
  Weight: 61.6892 kg

DRUGS (8)
  1. REBIF [Suspect]
     Indication: MULTIPLE SCLEROSIS
     Dosage: 44 MCG, 3 IN 1 WEEKS, SUBCUTANEOUS
     Route: 058
     Dates: start: 20060801, end: 20070411
  2. ^RELIV^ (ALL OTHER THERAPEUTIC PRODUCTS) [Concomitant]
  3. ALEVE [Concomitant]
  4. IBUPROFEN [Concomitant]
  5. SOLU-MEDROL [Concomitant]
  6. ALBUTEROL (SALBUTAMOL /00139501/) [Concomitant]
  7. SINGULAIR (MONTELUKAST /01362601/) [Concomitant]
  8. ALLEGRA [Concomitant]

REACTIONS (1)
  - HEPATITIS [None]
